FAERS Safety Report 13199341 (Version 2)
Quarter: 2017Q2

REPORT INFORMATION
  Report Type: Spontaneous
  Country: BR (occurrence: BR)
  Receive Date: 20170208
  Receipt Date: 20170403
  Transmission Date: 20170830
  Serious: Yes (Disabling, Other)
  Sender: FDA-Public Use
  Company Number: BR-ALEXION PHARMACEUTICALS INC.-A201701080

PATIENT
  Age: 40 Year
  Sex: Female

DRUGS (2)
  1. SOLIRIS [Suspect]
     Active Substance: ECULIZUMAB
     Indication: PAROXYSMAL NOCTURNAL HAEMOGLOBINURIA
     Dosage: 600 MG, QW FOR 4 WEEKS
     Route: 042
     Dates: start: 20120426, end: 20120517
  2. SOLIRIS [Suspect]
     Active Substance: ECULIZUMAB
     Dosage: 900 MG, Q2W
     Route: 042
     Dates: start: 20120524

REACTIONS (11)
  - Muscle rigidity [Unknown]
  - Inappropriate schedule of drug administration [Unknown]
  - Diarrhoea [Not Recovered/Not Resolved]
  - Hypoaesthesia [Unknown]
  - Somnolence [Unknown]
  - Vomiting [Not Recovered/Not Resolved]
  - Insomnia [Unknown]
  - Seizure [Not Recovered/Not Resolved]
  - Nausea [Not Recovered/Not Resolved]
  - Movement disorder [Unknown]
  - Viral infection [Not Recovered/Not Resolved]

NARRATIVE: CASE EVENT DATE: 20170124
